FAERS Safety Report 12376036 (Version 2)
Quarter: 2016Q2

REPORT INFORMATION
  Report Type: Spontaneous
  Country: US (occurrence: US)
  Receive Date: 20160517
  Receipt Date: 20160602
  Transmission Date: 20160815
  Serious: Yes (Life-Threatening, Hospitalization)
  Sender: FDA-Public Use
  Company Number: US-BAYER-2016-092705

PATIENT
  Sex: Male

DRUGS (1)
  1. COPPERTONE SPF 15 [Suspect]
     Active Substance: AVOBENZONE\HOMOSALATE\OCTISALATE\OCTOCRYLENE

REACTIONS (5)
  - Urticaria [None]
  - Urticaria [None]
  - Anaphylactic shock [None]
  - Throat tightness [None]
  - Hypersensitivity [None]

NARRATIVE: CASE EVENT DATE: 2016
